FAERS Safety Report 23933497 (Version 1)
Quarter: 2024Q2

REPORT INFORMATION
  Report Type: Spontaneous
  Country: US (occurrence: US)
  Receive Date: 20240603
  Receipt Date: 20240603
  Transmission Date: 20240716
  Serious: Yes (Other)
  Sender: FDA-Public Use
  Company Number: US-BBU-2024000092

PATIENT
  Age: 66 Year
  Sex: Male

DRUGS (7)
  1. TOCILIZUMAB [Suspect]
     Active Substance: TOCILIZUMAB
     Indication: VEXAS syndrome
  2. PREDNISONE [Concomitant]
     Active Substance: PREDNISONE
     Indication: VEXAS syndrome
     Dosage: CORTICOSTEROID, CONSISTENTLY ON PREDNISOLONE }20 YEARS
  3. METHOTREXATE [Concomitant]
     Active Substance: METHOTREXATE
     Indication: VEXAS syndrome
  4. DAPSONE [Concomitant]
     Active Substance: DAPSONE
     Indication: VEXAS syndrome
  5. HYDROXYCHLOROQUINE [Concomitant]
     Active Substance: HYDROXYCHLOROQUINE
     Indication: VEXAS syndrome
     Dosage: SINCE SEVERAL YEARS.
  6. RITUXIMAB [Concomitant]
     Active Substance: RITUXIMAB
     Indication: VEXAS syndrome
     Dosage: FOR TWO COURSES.
  7. ADALIMUMAB [Concomitant]
     Active Substance: ADALIMUMAB\ISOPROPYL ALCOHOL
     Indication: VEXAS syndrome
     Dosage: FOR FEW WEEKS.

REACTIONS (4)
  - Myelodysplastic syndrome [Unknown]
  - VEXAS syndrome [Unknown]
  - Condition aggravated [Unknown]
  - Off label use [Unknown]
